FAERS Safety Report 25246128 (Version 1)
Quarter: 2025Q2

REPORT INFORMATION
  Report Type: Spontaneous
  Country: US (occurrence: None)
  Receive Date: 20250428
  Receipt Date: 20250428
  Transmission Date: 20250717
  Serious: Yes (Hospitalization)
  Sender: FDA-CTU
  Company Number: None

PATIENT
  Sex: Female

DRUGS (1)
  1. XOLAIR [Suspect]
     Active Substance: OMALIZUMAB
     Indication: Asthma
     Dosage: OTHER QUANTITY : 2 SYRINGES ;?FREQUENCY : MONTHLY;?
     Route: 058
     Dates: start: 20250304

REACTIONS (2)
  - Gastrointestinal disorder [None]
  - Hospitalisation [None]
